FAERS Safety Report 12677466 (Version 3)
Quarter: 2017Q2

REPORT INFORMATION
  Report Type: Report from Study
  Country: None (occurrence: CH)
  Receive Date: 20160823
  Receipt Date: 20170625
  Transmission Date: 20170830
  Serious: Yes (Hospitalization)
  Sender: FDA-Public Use
  Company Number: CH-ABBVIE-16K-151-1705490-00

PATIENT
  Age: 83 Year
  Sex: Male

DRUGS (3)
  1. DUODOPA [Suspect]
     Active Substance: CARBIDOPA\LEVODOPA
     Dosage: MORNING DOSE: 6.0ML; CONTINUOUS RATE: 3.9ML/H; EXTRA DOSE: 1.5ML
     Route: 050
     Dates: start: 20160814, end: 20160816
  2. DUODOPA [Suspect]
     Active Substance: CARBIDOPA\LEVODOPA
     Dosage: MD: 6.0ML, CR: 3.9ML/H, ED: 1.5ML
     Route: 050
     Dates: start: 20160816
  3. DUODOPA [Suspect]
     Active Substance: CARBIDOPA\LEVODOPA
     Indication: PARKINSON^S DISEASE
     Dosage: MD: 6.0ML, CR: 3.9ML/H, ED: 1.5ML
     Route: 050
     Dates: start: 20131204, end: 20160814

REACTIONS (5)
  - Wrong technique in product usage process [Recovered/Resolved]
  - Urinary tract infection [Unknown]
  - Device connection issue [Recovered/Resolved]
  - Device dislocation [Unknown]
  - Incorrect route of drug administration [Recovered/Resolved]

NARRATIVE: CASE EVENT DATE: 201608
